FAERS Safety Report 13342988 (Version 1)
Quarter: 2017Q1

REPORT INFORMATION
  Report Type: Spontaneous
  Country: US (occurrence: US)
  Receive Date: 20170316
  Receipt Date: 20170316
  Transmission Date: 20170428
  Serious: No
  Sender: FDA-Public Use
  Company Number: US-BAYER-2017-043840

PATIENT
  Age: 47 Year
  Sex: Male
  Weight: 101.1 kg

DRUGS (1)
  1. ALEVE [Suspect]
     Active Substance: NAPROXEN SODIUM
     Indication: PAIN
     Dosage: 1 DF, UNK
     Route: 048
     Dates: start: 20170304, end: 20170304

REACTIONS (5)
  - Somnolence [Recovered/Resolved]
  - Musculoskeletal stiffness [Recovered/Resolved]
  - Dizziness [Recovered/Resolved]
  - Neck pain [Recovered/Resolved]
  - Product label confusion [None]

NARRATIVE: CASE EVENT DATE: 20170304
